FAERS Safety Report 4366972-9 (Version None)
Quarter: 2004Q2

REPORT INFORMATION
  Report Type: 
  Country: None (occurrence: None)
  Receive Date: 20040528
  Receipt Date: 20040512
  Transmission Date: 20050107
  Serious: No
  Sender: FDA-Public Use
  Company Number: PHHO2004CA06985

PATIENT
  Sex: Male

DRUGS (2)
  1. CLOZARIL [Suspect]
     Dosage: 600 MG, QD
     Route: 048
  2. HALDOL [Concomitant]
     Dosage: 15 MG,

REACTIONS (2)
  - DRUG LEVEL INCREASED [None]
  - SALIVARY HYPERSECRETION [None]
